FAERS Safety Report 12245767 (Version 1)
Quarter: 2016Q2

REPORT INFORMATION
  Report Type: Spontaneous
  Country: US (occurrence: US)
  Receive Date: 20160407
  Receipt Date: 20160407
  Transmission Date: 20160815
  Serious: Yes (Other)
  Sender: FDA-Public Use
  Company Number: US-009507513-1604USA000842

PATIENT
  Age: 61 Year
  Sex: Female

DRUGS (1)
  1. NASONEX [Suspect]
     Active Substance: MOMETASONE FUROATE
     Dosage: UNK
     Dates: start: 2006

REACTIONS (2)
  - Product quality issue [Unknown]
  - Back disorder [Unknown]

NARRATIVE: CASE EVENT DATE: 20160401
